FAERS Safety Report 4913752-9 (Version None)
Quarter: 2006Q1

REPORT INFORMATION
  Report Type: 
  Country: None (occurrence: None)
  Receive Date: 20060210
  Receipt Date: 20060127
  Transmission Date: 20060701
  Serious: Yes (Death)
  Sender: FDA-Public Use
  Company Number: L05-USA-03935-50

PATIENT
  Age: 40 Year
  Sex: Female

DRUGS (8)
  1. LEXAPRO [Suspect]
  2. SEROQUEL [Suspect]
  3. CLONAZEPAM [Suspect]
  4. METFORMIN [Suspect]
  5. DEPAKOTE [Suspect]
  6. HALDOL [Suspect]
  7. OPIATES [Suspect]
  8. PCP [Suspect]

REACTIONS (11)
  - ALANINE AMINOTRANSFERASE INCREASED [None]
  - ASPARTATE AMINOTRANSFERASE INCREASED [None]
  - ASPIRATION [None]
  - BLOOD CREATININE INCREASED [None]
  - BLOOD PH DECREASED [None]
  - BRAIN DEATH [None]
  - CARDIAC ARREST [None]
  - DRUG SCREEN POSITIVE [None]
  - HYPOXIC ENCEPHALOPATHY [None]
  - LOSS OF CONSCIOUSNESS [None]
  - RESPIRATORY ARREST [None]
